FAERS Safety Report 13053727 (Version 1)
Quarter: 2016Q4

REPORT INFORMATION
  Report Type: Spontaneous
  Country: US (occurrence: US)
  Receive Date: 20161222
  Receipt Date: 20161222
  Transmission Date: 20170207
  Serious: No
  Sender: FDA-Public Use
  Company Number: US-BAYER-2016-241043

PATIENT
  Sex: Male

DRUGS (1)
  1. MIRALAX [Suspect]
     Active Substance: POLYETHYLENE GLYCOL 3350
     Indication: COLOSTOMY
     Dosage: 8 OZ MIRALAX IN 64 OZ OF ICE TEA AND DRINK IN WITHIN 4 HOURS
     Route: 048

REACTIONS (1)
  - Off label use [Unknown]
